FAERS Safety Report 8483455-5 (Version None)
Quarter: 2012Q3

REPORT INFORMATION
  Report Type: 
  Country: None (occurrence: None)
  Receive Date: 20120702
  Receipt Date: 20120630
  Transmission Date: 20120928
  Serious: Yes (Other)
  Sender: FDA-Public Use
  Company Number: JP-ABBOTT-12P-087-0939029-00

PATIENT
  Sex: Male

DRUGS (7)
  1. HUMIRA [Suspect]
     Dates: start: 20110407, end: 20110407
  2. TPN [Concomitant]
     Indication: CROHN'S DISEASE
     Route: 048
  3. HUMIRA [Suspect]
     Indication: CROHN'S DISEASE
     Route: 058
     Dates: start: 20110325, end: 20110325
  4. MESALAMINE [Concomitant]
     Indication: CROHN'S DISEASE
     Route: 048
  5. CIPROFLOXACIN HYDROCHLORIDE [Concomitant]
     Indication: CROHN'S DISEASE
     Route: 048
     Dates: start: 20110407
  6. HUMIRA [Suspect]
     Dates: start: 20110421
  7. URSODIOL [Concomitant]
     Indication: PRODUCT USED FOR UNKNOWN INDICATION
     Route: 048
     Dates: end: 20110830

REACTIONS (3)
  - ABDOMINAL PAIN [None]
  - INTESTINAL STENOSIS [None]
  - HAEMORRHOIDS [None]
